FAERS Safety Report 24459211 (Version 1)
Quarter: 2024Q4

REPORT INFORMATION
  Report Type: Spontaneous
  Country: ID (occurrence: ID)
  Receive Date: 20241018
  Receipt Date: 20241018
  Transmission Date: 20250115
  Serious: No
  Sender: ROCHE
  Company Number: ID-ROCHE-3457336

PATIENT
  Age: 35 Year
  Sex: Female
  Weight: 96.0 kg

DRUGS (2)
  1. ALTEPLASE [Suspect]
     Active Substance: ALTEPLASE
     Indication: Pulmonary embolism
     Dosage: OVER 2 HOURS
     Route: 042
  2. ALTEPLASE [Suspect]
     Active Substance: ALTEPLASE
     Dosage: CONTINUED WITH 50 MG OVER NEXT 22 H
     Route: 042

REACTIONS (1)
  - Haematuria [Recovering/Resolving]
